FAERS Safety Report 5341697-1 (Version None)
Quarter: 2007Q2

REPORT INFORMATION
  Report Type: 
  Country: None (occurrence: None)
  Receive Date: 20070530
  Receipt Date: 20070516
  Transmission Date: 20071010
  Serious: Yes (Hospitalization)
  Sender: FDA-Public Use
  Company Number: 2007-01577

PATIENT
  Age: 40 Year
  Sex: Male
  Weight: 80 kg

DRUGS (9)
  1. VELCADE [Suspect]
     Indication: T-CELL LYMPHOMA
     Dosage: 3.00 MG, UNK, INTRAVENOUS
     Route: 042
     Dates: start: 20070326
  2. DOXORUBICIN HCL [Suspect]
     Indication: T-CELL LYMPHOMA
     Dosage: 150.00 MG, UNK, INTRAVENOUS
     Route: 042
     Dates: start: 20070326
  3. CYCLOPHOSPHAMIDE [Suspect]
     Indication: T-CELL LYMPHOMA
     Dosage: 2400.00 MG, UNK, INTRAVENOUS
     Route: 042
     Dates: start: 20070326
  4. ELDISINE [Suspect]
     Indication: T-CELL LYMPHOMA
     Dosage: 4.00 MG, UNK, INTRAVENOUS
     Route: 042
     Dates: start: 20070326
  5. BLEOMYCIN [Suspect]
     Indication: T-CELL LYMPHOMA
     Dosage: 10.00 MG, UNK, INTRAVENOUS
     Route: 042
     Dates: start: 20070326
  6. PREDNISONE [Suspect]
     Indication: T-CELL LYMPHOMA
     Dosage: 80.00 MG, UNK, INTRAVENOUS
     Route: 042
     Dates: start: 20070326
  7. GRANOCYTE 13-34(LENOGRASTIM) INJECTION, 150MG/M2 [Suspect]
     Indication: T-CELL LYMPHOMA
     Dosage: 263.00 MG, UNK, SUBCUTANEOUS
     Route: 058
     Dates: start: 20070401, end: 20070428
  8. BACTRIM [Suspect]
     Indication: T-CELL LYMPHOMA
     Dosage: 400.00 MG, UNK, ORAL
     Route: 048
     Dates: start: 20070326
  9. VALACYCLOVIR HCL [Suspect]
     Indication: T-CELL LYMPHOMA
     Dosage: 200.00 MG, UNK, ORAL
     Route: 048
     Dates: start: 20070326

REACTIONS (4)
  - FEBRILE NEUTROPENIA [None]
  - INFLAMMATION [None]
  - MUCOSAL INFLAMMATION [None]
  - NEUROPATHY [None]
